FAERS Safety Report 4769127-9 (Version None)
Quarter: 2005Q3

REPORT INFORMATION
  Report Type: 
  Country: None (occurrence: None)
  Receive Date: 20050912
  Receipt Date: 20050603
  Transmission Date: 20060218
  Serious: Yes (Hospitalization)
  Sender: FDA-Public Use
  Company Number: 2005-01223

PATIENT
  Age: 76 Year
  Sex: Female
  Weight: 80.7 kg

DRUGS (19)
  1. VELCADE [Suspect]
     Indication: MULTIPLE MYELOMA
     Dosage: 2/WEEK
     Dates: start: 20050208, end: 20050520
  2. FENTANYL [Concomitant]
  3. ACIPHEX [Concomitant]
  4. NASAREL (FLUNISOLIDE) [Concomitant]
  5. BACTRIM DS [Concomitant]
  6. SINGULAIR [Concomitant]
  7. ATENOLOL [Concomitant]
  8. PREMARIN [Concomitant]
  9. GAS-X (SIMETICONE) [Concomitant]
  10. LORAZEPAM [Concomitant]
  11. PROCHLORPERAZINE [Concomitant]
  12. SENNA [Concomitant]
  13. COLACE (DOCUSATE SODIUM) [Concomitant]
  14. SODIUM CHLORIDE [Concomitant]
  15. PROMETHAZINE [Concomitant]
  16. ZOFRAN [Concomitant]
  17. ARANESP [Concomitant]
  18. PERCOCET [Concomitant]
  19. AREDIA [Concomitant]

REACTIONS (13)
  - ABDOMINAL PAIN UPPER [None]
  - ANOREXIA [None]
  - ASTHENIA [None]
  - BONE PAIN [None]
  - DEHYDRATION [None]
  - DYSPNOEA [None]
  - FATIGUE [None]
  - HYPOTENSION [None]
  - INSOMNIA [None]
  - NAUSEA [None]
  - SWELLING FACE [None]
  - VISION BLURRED [None]
  - WHITE BLOOD CELL COUNT DECREASED [None]
